FAERS Safety Report 6647116-7 (Version None)
Quarter: 2010Q1

REPORT INFORMATION
  Report Type: 
  Country: None (occurrence: None)
  Receive Date: 20100323
  Receipt Date: 20100311
  Transmission Date: 20100710
  Serious: Yes (Hospitalization, Disabling)
  Sender: FDA-Public Use
  Company Number: PHEH2010US01914

PATIENT
  Sex: Female
  Weight: 76.644 kg

DRUGS (5)
  1. RECLAST [Suspect]
     Indication: OSTEOPOROSIS
     Dosage: 5 MG, ONCE/SINGLE YEARLY
     Dates: start: 20071218, end: 20071218
  2. RECLAST [Suspect]
     Dosage: 5 MG, ONCE/SINGLE YEARLY
     Dates: start: 20081219, end: 20081219
  3. RECLAST [Suspect]
     Dosage: 5 MG, ONCE/SINGLE YEARLY
     Dates: start: 20100106, end: 20100106
  4. ASACOL [Concomitant]
     Indication: CROHN'S DISEASE
     Dosage: 35 MG, TID
     Route: 048
     Dates: start: 19970101
  5. RANITIDINE [Concomitant]
     Indication: GASTRITIS
     Dosage: 300 MG, QHS
     Route: 048
     Dates: start: 20030101

REACTIONS (10)
  - APHASIA [None]
  - CEREBROVASCULAR ACCIDENT [None]
  - COGNITIVE DISORDER [None]
  - DYSARTHRIA [None]
  - HEADACHE [None]
  - HEMIPARESIS [None]
  - HEMIPLEGIA [None]
  - INFUSION SITE EXTRAVASATION [None]
  - MEMORY IMPAIRMENT [None]
  - SPEECH DISORDER [None]
